FAERS Safety Report 8483669-4 (Version None)
Quarter: 2012Q3

REPORT INFORMATION
  Report Type: 
  Country: None (occurrence: None)
  Receive Date: 20120703
  Receipt Date: 20120620
  Transmission Date: 20120928
  Serious: Yes (Hospitalization)
  Sender: FDA-Public Use
  Company Number: GB-MYLANLABS-2012S1013049

PATIENT
  Age: 75 Year
  Sex: Male

DRUGS (7)
  1. METFORMIN HCL [Concomitant]
     Route: 065
  2. SITAGLIPTIN [Interacting]
     Indication: TYPE 2 DIABETES MELLITUS
     Route: 065
  3. ASPIRIN [Concomitant]
     Route: 065
  4. RAMIPRIL [Concomitant]
     Route: 065
  5. GLICLAZIDE [Concomitant]
     Route: 065
  6. PIOGLITAZONE [Concomitant]
     Route: 065
  7. ATORVASTATIN [Suspect]
     Route: 065

REACTIONS (2)
  - RHABDOMYOLYSIS [None]
  - DRUG INTERACTION [None]
